FAERS Safety Report 7692609-7 (Version None)
Quarter: 2011Q3

REPORT INFORMATION
  Report Type: 
  Country: None (occurrence: None)
  Receive Date: 20110819
  Receipt Date: 20110809
  Transmission Date: 20111222
  Serious: No
  Sender: FDA-Public Use
  Company Number: US-BIOGENIDEC-2011BI030205

PATIENT
  Age: 58 Year
  Sex: Female

DRUGS (3)
  1. CYMBALTA [Concomitant]
     Indication: HYPOAESTHESIA
  2. GABAPENTIN [Concomitant]
     Indication: PARAESTHESIA
  3. AVONEX [Suspect]
     Indication: MULTIPLE SCLEROSIS
     Route: 030
     Dates: start: 20090801

REACTIONS (6)
  - FATIGUE [None]
  - NAUSEA [None]
  - MOBILITY DECREASED [None]
  - INFLUENZA LIKE ILLNESS [None]
  - MUSCULOSKELETAL DISORDER [None]
  - MENTAL IMPAIRMENT [None]
